FAERS Safety Report 23855008 (Version 1)
Quarter: 2024Q2

REPORT INFORMATION
  Report Type: Spontaneous
  Country: US (occurrence: US)
  Receive Date: 20240514
  Receipt Date: 20240514
  Transmission Date: 20240716
  Serious: No
  Sender: FDA-Public Use
  Company Number: US-SA-SAC20240506000740

PATIENT
  Age: 48 Year
  Sex: Male
  Weight: 126.37 kg

DRUGS (1)
  1. DUPIXENT [Suspect]
     Active Substance: DUPILUMAB
     Indication: Asthma
     Dosage: UNK
     Route: 065
     Dates: start: 20240313

REACTIONS (2)
  - Urinary tract infection [Unknown]
  - Prostatitis [Unknown]

NARRATIVE: CASE EVENT DATE: 20240401
